FAERS Safety Report 23130891 (Version 3)
Quarter: 2023Q4

REPORT INFORMATION
  Report Type: Spontaneous
  Country: US (occurrence: US)
  Receive Date: 20231031
  Receipt Date: 20231222
  Transmission Date: 20240110
  Serious: No
  Sender: FDA-Public Use
  Company Number: US-VERTEX PHARMACEUTICALS-2023-013455

PATIENT

DRUGS (1)
  1. TRIKAFTA [Suspect]
     Active Substance: ELEXACAFTOR\IVACAFTOR\TEZACAFTOR
     Indication: Cystic fibrosis
     Dosage: 2 PILLS
     Route: 048

REACTIONS (10)
  - Delusion [Unknown]
  - Exercise tolerance decreased [Unknown]
  - COVID-19 [Unknown]
  - Heart rate increased [Unknown]
  - Weight increased [Unknown]
  - Anxiety [Unknown]
  - Asthenia [Unknown]
  - Emotional distress [Unknown]
  - Depression [Unknown]
  - Dizziness [Unknown]
